FAERS Safety Report 16691672 (Version 3)
Quarter: 2019Q3

REPORT INFORMATION
  Report Type: Spontaneous
  Country: US (occurrence: US)
  Receive Date: 20190812
  Receipt Date: 20190910
  Transmission Date: 20191004
  Serious: Yes (Other)
  Sender: FDA-Public Use
  Company Number: US-JNJFOC-20190743298

PATIENT
  Sex: Female
  Weight: 59.02 kg

DRUGS (1)
  1. NEUTROGENA OIL FREE ACNE WASH PINK GRAPEFRUIT FACIAL CLEANSER [Suspect]
     Active Substance: SALICYLIC ACID
     Indication: ACNE
     Dosage: A LITTLE BIT, ENOUGH TO COVER FACE
     Route: 061

REACTIONS (4)
  - Application site rash [Recovered/Resolved]
  - Application site pruritus [Not Recovered/Not Resolved]
  - Chemical burn [Recovered/Resolved]
  - Application site discharge [Not Recovered/Not Resolved]
